FAERS Safety Report 14401995 (Version 2)
Quarter: 2018Q1

REPORT INFORMATION
  Report Type: Spontaneous
  Country: CH (occurrence: CH)
  Receive Date: 20180117
  Receipt Date: 20180118
  Transmission Date: 20180509
  Serious: Yes (Other)
  Sender: FDA-Public Use
  Company Number: CH-009507513-1801CHE003884

PATIENT
  Age: 61 Year
  Sex: Male

DRUGS (1)
  1. PEMBROLIZUMAB. [Suspect]
     Active Substance: PEMBROLIZUMAB
     Indication: METASTATIC MALIGNANT MELANOMA
     Dosage: UNK

REACTIONS (4)
  - Pneumonitis [Unknown]
  - Organising pneumonia [Unknown]
  - Immune-mediated adverse reaction [Unknown]
  - Therapy partial responder [Unknown]
